FAERS Safety Report 9063828 (Version 1)
Quarter: 2013Q1

REPORT INFORMATION
  Report Type: Report from Study
  Country: US (occurrence: US)
  Receive Date: 20130130
  Receipt Date: 20130130
  Transmission Date: 20140127
  Serious: Yes (Other)
  Sender: FDA-Public Use
  Company Number: US-ABBOTT-12P-163-0940390-00

PATIENT
  Sex: Male
  Weight: 95.34 kg

DRUGS (3)
  1. HUMIRA 40 MG/ 0.8 ML PRE-FILLED SYRINGE [Suspect]
     Indication: ANKYLOSING SPONDYLITIS
     Dates: start: 2003, end: 2004
  2. HUMIRA 40 MG/0.8 ML PEN [Suspect]
     Indication: ANKYLOSING SPONDYLITIS
     Dates: start: 201205
  3. LANTUS INSULIN [Concomitant]
     Indication: DIABETES MELLITUS

REACTIONS (3)
  - Hip arthroplasty [Recovered/Resolved]
  - Neuralgia [Not Recovered/Not Resolved]
  - Respiratory tract infection [Recovered/Resolved]
